FAERS Safety Report 9324488 (Version 2)
Quarter: 2013Q2

REPORT INFORMATION
  Report Type: Spontaneous
  Country: US (occurrence: None)
  Receive Date: 20130529
  Receipt Date: 20130627
  Transmission Date: 20140414
  Serious: Yes (Other)
  Sender: FDA-Public Use
  Company Number: VAL_02539_2013

PATIENT
  Age: 61 Year
  Sex: Female

DRUGS (6)
  1. METOPROLOL TARTRATE [Suspect]
     Indication: PRODUCT USED FOR UNKNOWN INDICATION
  2. CEFEPIME [Suspect]
     Indication: ARTHRITIS BACTERIAL
  3. LEVOFLOXACIN [Suspect]
     Indication: ARTHRITIS BACTERIAL
  4. TACROLIMUS [Concomitant]
  5. COUMADIN/00014802 [Concomitant]
  6. DOCUSATE SODIUM (UNKNOWN) [Concomitant]

REACTIONS (6)
  - Pseudolymphoma [None]
  - Skin exfoliation [None]
  - Pruritus [None]
  - Erythema [None]
  - Dermatitis [None]
  - Macule [None]
